FAERS Safety Report 6065790-3 (Version None)
Quarter: 2009Q1

REPORT INFORMATION
  Report Type: 
  Country: None (occurrence: None)
  Receive Date: 20090205
  Receipt Date: 20090122
  Transmission Date: 20090719
  Serious: Yes (Other)
  Sender: FDA-Public Use
  Company Number: US-RB-009139-09

PATIENT
  Sex: Male

DRUGS (2)
  1. MUCINEX DM MAXIMUM STRENGTH EXTENDED RELEASE [Suspect]
  2. DIPHENYLHYDRAMINE [Suspect]

REACTIONS (2)
  - DRUG INTERACTION [None]
  - SEROTONIN SYNDROME [None]
